FAERS Safety Report 19041936 (Version 1)
Quarter: 2021Q1

REPORT INFORMATION
  Report Type: Spontaneous
  Country: NL (occurrence: NL)
  Receive Date: 20210323
  Receipt Date: 20210323
  Transmission Date: 20210420
  Serious: Yes (Other)
  Sender: FDA-Public Use
  Company Number: NL-AUROBINDO-AUR-APL-2016-04272

PATIENT
  Age: 15 Year
  Sex: Female

DRUGS (1)
  1. PARACETAMOL 500MG [Suspect]
     Active Substance: ACETAMINOPHEN
     Indication: PRODUCT USED FOR UNKNOWN INDICATION
     Dosage: 500 MG, 40 X PARACETAMOL 500 MG TABLETS
     Route: 065

REACTIONS (2)
  - Hepatotoxicity [Unknown]
  - Toxicity to various agents [Unknown]
